FAERS Safety Report 5958891-9 (Version None)
Quarter: 2008Q4

REPORT INFORMATION
  Report Type: 
  Country: None (occurrence: None)
  Receive Date: 20081118
  Receipt Date: 20081103
  Transmission Date: 20090506
  Serious: Yes (Hospitalization)
  Sender: FDA-Public Use
  Company Number: 2008S1019714

PATIENT
  Age: 6 Year
  Sex: Male

DRUGS (2)
  1. DEXTROMETHORPHAN HYDROBROMIDE [Suspect]
     Indication: ACCIDENTAL DRUG INTAKE BY CHILD
  2. SERTRALINE HCL [Suspect]
     Indication: DRUG USE FOR UNKNOWN INDICATION

REACTIONS (6)
  - ACCIDENTAL DRUG INTAKE BY CHILD [None]
  - CONFUSIONAL STATE [None]
  - LETHARGY [None]
  - MYDRIASIS [None]
  - OVERDOSE [None]
  - SEROTONIN SYNDROME [None]
